FAERS Safety Report 6195588-7 (Version None)
Quarter: 2009Q2

REPORT INFORMATION
  Report Type: 
  Country: None (occurrence: None)
  Receive Date: 20090519
  Receipt Date: 20090513
  Transmission Date: 20091009
  Serious: Yes (Other)
  Sender: FDA-Public Use
  Company Number: US-ABBOTT-09P-163-0573415-00

PATIENT
  Age: 53 Year
  Sex: Female

DRUGS (2)
  1. DEPAKOTE ER [Suspect]
     Indication: DRUG USE FOR UNKNOWN INDICATION
  2. DIVALPROEX SODIUM [Suspect]
     Indication: DRUG USE FOR UNKNOWN INDICATION

REACTIONS (7)
  - BONE NEOPLASM [None]
  - DIZZINESS [None]
  - FACIAL PALSY [None]
  - HYPOAESTHESIA FACIAL [None]
  - SPEECH DISORDER [None]
  - SYNCOPE [None]
  - TREMOR [None]
